FAERS Safety Report 6404862-8 (Version None)
Quarter: 2009Q4

REPORT INFORMATION
  Report Type: 
  Country: None (occurrence: None)
  Receive Date: 20091019
  Receipt Date: 20091012
  Transmission Date: 20100525
  Serious: Yes (Life-Threatening, Hospitalization, Other)
  Sender: FDA-Public Use
  Company Number: US-CELGENEUS-163-20785-09070786

PATIENT
  Sex: Male
  Weight: 88.076 kg

DRUGS (11)
  1. THALOMID [Suspect]
     Indication: ERYTHEMA NODOSUM LEPROSUM
     Route: 048
     Dates: start: 20080228
  2. THALOMID [Suspect]
     Indication: LEPROSY
  3. DAPSONE [Concomitant]
     Indication: LEPROSY
     Route: 065
  4. CLOFAZIMINE [Concomitant]
     Indication: LEPROSY
     Route: 065
  5. PREDNISONE TAB [Concomitant]
     Indication: ERYTHEMA NODOSUM LEPROSUM
     Route: 065
     Dates: start: 20061024
  6. AMITRIPTYLINE [Concomitant]
     Indication: INSOMNIA
     Route: 065
  7. SPIRIVA [Concomitant]
     Route: 065
  8. ADVAIR DISKUS 100/50 [Concomitant]
     Dosage: 500/50
     Route: 065
  9. PLENODIL [Concomitant]
     Indication: HYPERTENSION
     Route: 065
  10. METOPROLOL [Concomitant]
     Indication: CORONARY ARTERY DISEASE
     Route: 065
  11. ASPIRIN [Concomitant]
     Dates: start: 20080301

REACTIONS (6)
  - CARDIAC FAILURE CONGESTIVE [None]
  - CHRONIC OBSTRUCTIVE PULMONARY DISEASE [None]
  - DEEP VEIN THROMBOSIS [None]
  - MENTAL STATUS CHANGES [None]
  - PNEUMONIA [None]
  - PULMONARY EMBOLISM [None]
